FAERS Safety Report 19981479 (Version 1)
Quarter: 2021Q4

REPORT INFORMATION
  Report Type: Report from Study
  Country: CA (occurrence: CA)
  Receive Date: 20211021
  Receipt Date: 20211021
  Transmission Date: 20220303
  Serious: Yes (Other)
  Sender: FDA-Public Use
  Company Number: 2021A774266

PATIENT
  Age: 53 Year
  Sex: Female

DRUGS (6)
  1. ROSUVASTATIN [Suspect]
     Active Substance: ROSUVASTATIN
     Route: 048
  2. ENBREL [Suspect]
     Active Substance: ETANERCEPT
     Indication: Psoriatic arthropathy
     Route: 065
  3. METHOTREXATE [Suspect]
     Active Substance: METHOTREXATE
     Indication: Psoriatic arthropathy
     Route: 065
  4. CORTISONE ACETATE [Concomitant]
     Active Substance: CORTISONE ACETATE
  5. HUMIRA [Concomitant]
     Active Substance: ADALIMUMAB
  6. THIORIDAZINE [Concomitant]
     Active Substance: THIORIDAZINE

REACTIONS (4)
  - Drug intolerance [Unknown]
  - Hepatocellular injury [Unknown]
  - Rash [Unknown]
  - Drug ineffective [Unknown]
